FAERS Safety Report 25607621 (Version 1)
Quarter: 2025Q3

REPORT INFORMATION
  Report Type: Spontaneous
  Country: CH (occurrence: CH)
  Receive Date: 20250725
  Receipt Date: 20250725
  Transmission Date: 20251021
  Serious: Yes (Other)
  Sender: DAIICHI
  Company Number: CH-DSJP-DSE-2023-126522

PATIENT
  Sex: Female

DRUGS (1)
  1. ENHERTU [Suspect]
     Active Substance: FAM-TRASTUZUMAB DERUXTECAN-NXKI
     Indication: Product used for unknown indication
     Route: 065

REACTIONS (5)
  - Metastasis [Unknown]
  - Condition aggravated [Unknown]
  - Disorientation [Unknown]
  - Liver disorder [Unknown]
  - Therapy non-responder [Unknown]
